FAERS Safety Report 6412376-4 (Version None)
Quarter: 2009Q4

REPORT INFORMATION
  Report Type: 
  Country: None (occurrence: None)
  Receive Date: 20091020
  Receipt Date: 20091007
  Transmission Date: 20100525
  Serious: Yes (Death, Hospitalization)
  Sender: FDA-Public Use
  Company Number: 2009AC000131

PATIENT
  Age: 83 Year
  Sex: Male

DRUGS (25)
  1. DIGOXIN [Suspect]
     Dosage: 0.25 MG; UNKNOWN; PO
     Route: 048
  2. AMBIEN [Concomitant]
  3. PRILOSEC [Concomitant]
  4. NAMENDA [Concomitant]
  5. LEXAPRO [Concomitant]
  6. ARICEPT [Concomitant]
  7. CEREFOLIN [Concomitant]
  8. ASPIRIN [Concomitant]
  9. TYLENOL [Concomitant]
  10. QUININE SULFATE [Concomitant]
  11. FENTANYL TRANSDERMAL SYSTEM [Concomitant]
  12. LOVENOX [Concomitant]
  13. ADVICOR [Concomitant]
  14. SPIRONOLACTONE [Concomitant]
  15. DIPHENOXYLATE [Concomitant]
  16. METRONIDAZOLE [Concomitant]
  17. LEXAPRO [Concomitant]
  18. FUROSEMIDE [Concomitant]
  19. KLOR-CON [Concomitant]
  20. CEPHALEXIN [Concomitant]
  21. OMEPRAZOLE [Concomitant]
  22. POTASSIUM CHLORIDE [Concomitant]
  23. PROTONIX [Concomitant]
  24. FOSINOPRIL SODIUM [Concomitant]
  25. ALPRAZOLAM [Concomitant]

REACTIONS (30)
  - ANHEDONIA [None]
  - ANXIETY [None]
  - ASTHENIA [None]
  - ATRIAL FIBRILLATION [None]
  - BLINDNESS [None]
  - BLOOD CREATININE INCREASED [None]
  - BLOOD GLUCOSE INCREASED [None]
  - BLOOD UREA INCREASED [None]
  - CARDIAC ARREST [None]
  - CARDIAC FAILURE CONGESTIVE [None]
  - CARDIOACTIVE DRUG LEVEL INCREASED [None]
  - DEAFNESS [None]
  - DEHYDRATION [None]
  - DIARRHOEA [None]
  - FATIGUE [None]
  - HYPERTENSION [None]
  - HYPOPHOSPHATAEMIA [None]
  - HYPOTENSION [None]
  - HYPOXIA [None]
  - ILL-DEFINED DISORDER [None]
  - MULTIPLE INJURIES [None]
  - MYOCARDIAL INFARCTION [None]
  - NAUSEA [None]
  - PAIN [None]
  - RENAL FAILURE ACUTE [None]
  - RESPIRATORY FAILURE [None]
  - SEPSIS [None]
  - THERAPEUTIC AGENT TOXICITY [None]
  - URINARY TRACT INFECTION [None]
  - VOMITING [None]
